FAERS Safety Report 19719428 (Version 1)
Quarter: 2021Q3

REPORT INFORMATION
  Report Type: Spontaneous
  Country: US (occurrence: US)
  Receive Date: 20210817
  Receipt Date: 20210817
  Transmission Date: 20211014
  Serious: Yes (Disabling)
  Sender: FDA-Public Use
  Company Number: None

PATIENT
  Age: 63 Year
  Sex: Female
  Weight: 53.52 kg

DRUGS (4)
  1. TRAVATAN Z [Concomitant]
     Active Substance: TRAVOPROST
  2. FISH OIL [Concomitant]
     Active Substance: FISH OIL
  3. VITAMIN D [Concomitant]
     Active Substance: VITAMIN D NOS
  4. ^PURE ENCAPSULATIONS^ ? PREGNENOLONE 30MG [Suspect]
     Active Substance: PREGNENOLONE
     Indication: BONE DISORDER
     Dosage: ?          QUANTITY:1 DF DOSAGE FORM;?
     Route: 048
     Dates: start: 201709, end: 20210712

REACTIONS (4)
  - Flushing [None]
  - Hypermetabolism [None]
  - Palpitations [None]
  - Weight decreased [None]

NARRATIVE: CASE EVENT DATE: 202107
